FAERS Safety Report 20939446 (Version 6)
Quarter: 2022Q4

REPORT INFORMATION
  Report Type: Report from Study
  Country: DE (occurrence: None)
  Receive Date: 20220609
  Receipt Date: 20221016
  Transmission Date: 20230113
  Serious: Yes (Hospitalization)
  Sender: FDA-Public Use
  Company Number: DE-ROCHE-3108665

PATIENT
  Age: 56 Year
  Sex: Female
  Weight: 60 kg

DRUGS (30)
  1. ATEZOLIZUMAB [Suspect]
     Active Substance: ATEZOLIZUMAB
     Indication: Triple negative breast cancer
     Dosage: DATE OF LAST DOSE PRIOR TO SAE: 20/APR/2022
     Route: 041
     Dates: start: 20220420
  2. PACLITAXEL [Suspect]
     Active Substance: PACLITAXEL
     Indication: Triple negative breast cancer
     Dosage: DATE OF LAST DOSE PRIOR TO SAE: 07/JUL/2022 ?DATE OF LAST DOSE PRIOR TO SAE: 14/JUL/2022?DATE OF LAS
     Route: 042
     Dates: start: 20220524
  3. CARBOPLATIN [Suspect]
     Active Substance: CARBOPLATIN
     Indication: Triple negative breast cancer
     Dosage: DATE OF LAST DOSE PRIOR TO SAE: 07/JUL/2022?DATE OF LAST DOSE PRIOR TO SAE: 14/JUL/2022?DATE OF LAST
     Route: 042
     Dates: start: 20220524
  4. IODINE [Concomitant]
     Active Substance: IODINE
     Dates: start: 20120101
  5. PREDNISOLONE [Concomitant]
     Active Substance: PREDNISOLONE
     Dates: start: 20220506, end: 20220508
  6. PREDNISOLONE [Concomitant]
     Active Substance: PREDNISOLONE
     Dates: start: 20220509, end: 20220512
  7. PREDNISOLONE [Concomitant]
     Active Substance: PREDNISOLONE
     Dates: start: 20220513, end: 20220516
  8. PREDNISOLONE [Concomitant]
     Active Substance: PREDNISOLONE
     Dates: start: 20220517, end: 20220520
  9. PREDNISOLONE [Concomitant]
     Active Substance: PREDNISOLONE
     Dates: start: 20220521, end: 20220524
  10. PREDNISOLONE [Concomitant]
     Active Substance: PREDNISOLONE
     Dates: start: 20220525, end: 20220528
  11. PREDNISOLONE [Concomitant]
     Active Substance: PREDNISOLONE
     Dates: start: 20220529, end: 20220601
  12. SULFAMETHOXAZOLE\TRIMETHOPRIM [Concomitant]
     Active Substance: SULFAMETHOXAZOLE\TRIMETHOPRIM
     Dates: start: 20220509, end: 20220510
  13. ATROVENT [Concomitant]
     Active Substance: IPRATROPIUM BROMIDE
     Dates: start: 20220511
  14. ALBUTEROL [Concomitant]
     Active Substance: ALBUTEROL
     Dates: start: 20220511
  15. AZITHROMYCIN [Concomitant]
     Active Substance: AZITHROMYCIN
     Dates: start: 20220509, end: 20220511
  16. ZOFRAN [Concomitant]
     Active Substance: ONDANSETRON HYDROCHLORIDE
     Dosage: OTHER
     Dates: start: 20220524
  17. DEXAMETHASONE [Concomitant]
     Active Substance: DEXAMETHASONE
     Dosage: OTHER
     Dates: start: 20220524
  18. DIMETHINDENE [Concomitant]
     Active Substance: DIMETHINDENE
     Dosage: OTHER
     Dates: start: 20220524
  19. DIMETHINDENE [Concomitant]
     Active Substance: DIMETHINDENE
     Dates: start: 20220630, end: 20220704
  20. UNACID [Concomitant]
     Dates: start: 20220501, end: 20220504
  21. PANTOPRAZOLE SODIUM [Concomitant]
     Active Substance: PANTOPRAZOLE SODIUM
     Dates: start: 20220524
  22. ACETAMINOPHEN [Concomitant]
     Active Substance: ACETAMINOPHEN
     Dates: start: 20220501, end: 20220501
  23. ACETAMINOPHEN [Concomitant]
     Active Substance: ACETAMINOPHEN
     Dosage: 10 MG/ML AS NEEDED
     Dates: start: 20220707
  24. MAGNESIUM [Concomitant]
     Active Substance: MAGNESIUM
     Dates: start: 20220608
  25. MELATONIN [Concomitant]
     Active Substance: MELATONIN
     Dates: start: 20220615
  26. AMOXICILLIN\CLAVULANATE POTASSIUM [Concomitant]
     Active Substance: AMOXICILLIN\CLAVULANATE POTASSIUM
     Dosage: 875/125 MG
     Dates: start: 20220629, end: 20220630
  27. FILGRASTIM [Concomitant]
     Active Substance: FILGRASTIM
     Dosage: 30MIO IE OTHER
     Dates: start: 20220705
  28. ANGOCIN [Concomitant]
     Dosage: AS NEEDED
     Dates: start: 20220708
  29. TRYPTOPHAN [Concomitant]
     Active Substance: TRYPTOPHAN
     Dates: start: 20220711
  30. NOVALGIN (METAMIZOLE SODIUM) [Concomitant]
     Active Substance: METAMIZOLE SODIUM
     Dates: start: 20220714, end: 20220715

REACTIONS (3)
  - Pneumonitis [Recovered/Resolved]
  - Pyrexia [Recovered/Resolved]
  - Hepatic enzyme increased [Recovered/Resolved]

NARRATIVE: CASE EVENT DATE: 20220501
